FAERS Safety Report 6612289-9 (Version None)
Quarter: 2010Q1

REPORT INFORMATION
  Report Type: 
  Country: None (occurrence: None)
  Receive Date: 20100302
  Receipt Date: 20100302
  Transmission Date: 20100710
  Serious: Yes (Hospitalization)
  Sender: FDA-Public Use
  Company Number: None

PATIENT
  Age: 57 Year
  Sex: Female
  Weight: 67.586 kg

DRUGS (2)
  1. VIRACEPT [Suspect]
     Indication: PROPHYLAXIS
     Dosage: 1250 MG BID PO
     Route: 048
     Dates: start: 20100202, end: 20100215
  2. COMBIVIR [Suspect]
     Indication: PROPHYLAXIS
     Dosage: NOT SURE BID PO
     Route: 048
     Dates: start: 20100202, end: 20100215

REACTIONS (3)
  - ABDOMINAL PAIN [None]
  - CHEST PAIN [None]
  - HEPATIC ENZYME INCREASED [None]
